FAERS Safety Report 8905229 (Version 3)
Quarter: 2013Q1

REPORT INFORMATION
  Report Type: Spontaneous
  Country: US (occurrence: US)
  Receive Date: 20121109
  Receipt Date: 20130111
  Transmission Date: 20140127
  Serious: No
  Sender: FDA-Public Use
  Company Number: US-PFIZER INC-2012278666

PATIENT
  Age: 36 Year
  Sex: Female

DRUGS (2)
  1. EFFEXOR XR [Suspect]
     Dosage: 225 MG, 1X/DAY
     Dates: start: 2003
  2. VENLAFAXINE HYDROCHLORIDE [Suspect]
     Dosage: 225 MG, 1X/DAY
     Dates: start: 2009

REACTIONS (1)
  - Malaise [Unknown]
